FAERS Safety Report 20083331 (Version 1)
Quarter: 2021Q4

REPORT INFORMATION
  Report Type: Spontaneous
  Country: DE (occurrence: DE)
  Receive Date: 20211117
  Receipt Date: 20211117
  Transmission Date: 20220303
  Serious: Yes (Hospitalization, Other)
  Sender: FDA-Public Use
  Company Number: DE-ADRED-07080-01

PATIENT
  Age: 65 Year
  Sex: Male
  Weight: 67 kg

DRUGS (10)
  1. AMIODARONE [Suspect]
     Active Substance: AMIODARONE
     Indication: Product used for unknown indication
     Dosage: 200 MILLIGRAM, QD (1-0-0-0, TABLETTEN)
     Route: 048
  2. IBRUTINIB [Suspect]
     Active Substance: IBRUTINIB
     Indication: Product used for unknown indication
     Dosage: 560 MILLIGRAM, QD (0-1-0-0, TABLETTEN)
     Route: 048
  3. INSULIN ASPART [Concomitant]
     Active Substance: INSULIN ASPART
     Dosage: 1 INTERNATIONAL UNIT (7-5-4-0, INJEKTIONS-/INFUSIONSL?SUNG)
     Route: 058
  4. FORMOTEROL [Concomitant]
     Active Substance: FORMOTEROL
     Dosage: 12 MICROGRAM ( 2-0-2-0, HPI)
     Route: 055
  5. PANCREATIN [Concomitant]
     Active Substance: PANCRELIPASE
     Dosage: 25000 INTERNATIONAL UNIT (1-1-1-0, KMP)
     Route: 048
  6. TORSEMIDE [Concomitant]
     Active Substance: TORSEMIDE
     Dosage: 5 MILLIGRAM, QD (3-0-0-0, TABLETTEN)
     Route: 048
  7. FENOTEROL W/IPRATROPIUM BROMIDE [Concomitant]
     Dosage: 0.039|0.02 MG, BEDARF, DOSIERAEROSOL
     Route: 055
  8. BISOPROLOL [Concomitant]
     Active Substance: BISOPROLOL
     Dosage: 2.5 MILLIGRAM (2-0-1-0, TABLETTEN)
     Route: 048
  9. ZOPICLONE [Concomitant]
     Active Substance: ZOPICLONE
     Dosage: 7.5 MILLIGRAM (0-0-0.5-0, TABLETTEN)
     Route: 048
  10. EDOXABAN [Concomitant]
     Active Substance: EDOXABAN
     Dosage: 60 MILLIGRAM, QD (1-0-0-0, TABLETTEN)
     Route: 048

REACTIONS (6)
  - Atrial fibrillation [Unknown]
  - Angina pectoris [Unknown]
  - Palpitations [Unknown]
  - Tachycardia [Unknown]
  - Dyspnoea [Unknown]
  - Product prescribing error [Unknown]
